FAERS Safety Report 5650171-4 (Version None)
Quarter: 2008Q1

REPORT INFORMATION
  Report Type: 
  Country: None (occurrence: None)
  Receive Date: 20080303
  Receipt Date: 20080229
  Transmission Date: 20080703
  Serious: Yes (Hospitalization, Other)
  Sender: FDA-Public Use
  Company Number: 100#08#2008-00874

PATIENT
  Age: 74 Year
  Sex: Male

DRUGS (4)
  1. CARBAMAZEPINE [Suspect]
     Indication: DRUG USE FOR UNKNOWN INDICATION
     Dosage: 600 MG
  2. CLOMIPRAMINE HCL [Concomitant]
  3. LIOTHYRONINE SODIUM [Concomitant]
  4. LORAZEPAM [Concomitant]

REACTIONS (6)
  - BIPOLAR DISORDER [None]
  - HEPATIC ENZYME INCREASED [None]
  - MAJOR DEPRESSION [None]
  - MANIA [None]
  - POOR QUALITY SLEEP [None]
  - THERAPY CESSATION [None]
